FAERS Safety Report 14714940 (Version 3)
Quarter: 2022Q1

REPORT INFORMATION
  Report Type: Spontaneous
  Country: US (occurrence: US)
  Receive Date: 20180404
  Receipt Date: 20220223
  Transmission Date: 20220423
  Serious: Yes (Hospitalization)
  Sender: FDA-Public Use
  Company Number: US-PFIZER INC-2018136420

PATIENT
  Age: 51 Year
  Sex: Female

DRUGS (17)
  1. XELJANZ [Suspect]
     Active Substance: TOFACITINIB CITRATE
     Indication: Rheumatoid arthritis
     Dosage: 5 MG, 2X/DAY
     Route: 048
     Dates: start: 201606
  2. XELJANZ [Suspect]
     Active Substance: TOFACITINIB CITRATE
     Dosage: 5 MG, 2X/DAY
     Route: 048
  3. GLIPIZIDE [Concomitant]
     Active Substance: GLIPIZIDE
     Dosage: UNK
  4. BENAZEPRIL HYDROCHLORIDE [Concomitant]
     Active Substance: BENAZEPRIL HYDROCHLORIDE
     Dosage: UNK
  5. OMEPRAZOLE [Concomitant]
     Active Substance: OMEPRAZOLE
     Dosage: UNK
  6. TRAMADOL HCL [Concomitant]
     Active Substance: TRAMADOL HYDROCHLORIDE
     Dosage: UNK
  7. CALCIUM [Concomitant]
     Active Substance: CALCIUM
     Dosage: UNK
  8. FOLIC ACID [Concomitant]
     Active Substance: FOLIC ACID
     Dosage: UNK
  9. LYRICA [Concomitant]
     Active Substance: PREGABALIN
     Dosage: UNK
  10. SIMVASTATIN [Concomitant]
     Active Substance: SIMVASTATIN
     Dosage: UNK
  11. METFORMIN HYDROCHLORIDE [Concomitant]
     Active Substance: METFORMIN HYDROCHLORIDE
     Dosage: UNK
  12. SAVELLA [Concomitant]
     Active Substance: MILNACIPRAN HYDROCHLORIDE
     Dosage: UNK
  13. GENTAMICIN SULFATE [Concomitant]
     Active Substance: GENTAMICIN SULFATE
     Dosage: UNK
  14. HYDROXYCHLOROQUINE SULFATE [Concomitant]
     Active Substance: HYDROXYCHLOROQUINE SULFATE
     Dosage: UNK
  15. METHOTREXATE SODIUM [Concomitant]
     Active Substance: METHOTREXATE SODIUM
     Dosage: UNK
  16. BACLOFEN [Concomitant]
     Active Substance: BACLOFEN
     Dosage: UNK
  17. ACTOS [Concomitant]
     Active Substance: PIOGLITAZONE HYDROCHLORIDE
     Dosage: UNK

REACTIONS (4)
  - Chest pain [Unknown]
  - Fibromyalgia [Unknown]
  - Blood glucose increased [Unknown]
  - Product dose omission issue [Unknown]
